APPROVED DRUG PRODUCT: AZMIRO
Active Ingredient: TESTOSTERONE CYPIONATE
Strength: 200MG/ML (200MG/ML)
Dosage Form/Route: SOLUTION;INTRAMUSCULAR
Application: N216318 | Product #001
Applicant: AZURITY PHARMACEUTICALS INC
Approved: Jun 2, 2022 | RLD: Yes | RS: Yes | Type: RX

PATENTS:
Patent 12138271 | Expires: Mar 25, 2039
Patent 11642355 | Expires: Mar 25, 2039
Patent 11311554 | Expires: Mar 25, 2039